FAERS Safety Report 19820840 (Version 1)
Quarter: 2021Q3

REPORT INFORMATION
  Report Type: Spontaneous
  Country: US (occurrence: US)
  Receive Date: 20210910
  Receipt Date: 20210910
  Transmission Date: 20211014
  Serious: Yes (Hospitalization)
  Sender: FDA-Public Use
  Company Number: None

PATIENT
  Age: 39 Year
  Sex: Male

DRUGS (5)
  1. AMITRIPTYLIN [Concomitant]
     Active Substance: AMITRIPTYLINE
  2. MESALAMINE. [Concomitant]
     Active Substance: MESALAMINE
  3. TRIAMCINOLON CRE [Concomitant]
  4. DICYCLOMINE [Concomitant]
     Active Substance: DICYCLOMINE HYDROCHLORIDE
  5. HUMIRA [Suspect]
     Active Substance: ADALIMUMAB
     Indication: COLITIS ULCERATIVE
     Dosage: ?          OTHER DOSE:1 PEN;OTHER FREQUENCY:Q10D;?
     Route: 058
     Dates: start: 20200430, end: 20210909

REACTIONS (2)
  - Hypersensitivity [None]
  - Swelling face [None]

NARRATIVE: CASE EVENT DATE: 20210709
